FAERS Safety Report 14480339 (Version 1)
Quarter: 2018Q1

REPORT INFORMATION
  Report Type: Spontaneous
  Country: US (occurrence: US)
  Receive Date: 20180202
  Receipt Date: 20180202
  Transmission Date: 20180509
  Serious: Yes (Hospitalization, Other)
  Sender: FDA-Public Use
  Company Number: US-ASTRAZENECA-2018SE11007

PATIENT
  Age: 36 Year
  Sex: Female
  Weight: 77 kg

DRUGS (25)
  1. LORAZEPAM. [Concomitant]
     Active Substance: LORAZEPAM
  2. MAGNESIUM OXIDE. [Concomitant]
     Active Substance: MAGNESIUM OXIDE
     Route: 048
  3. PERTUZUMAB. [Concomitant]
     Active Substance: PERTUZUMAB
  4. FULVESTRANT. [Suspect]
     Active Substance: FULVESTRANT
     Indication: BREAST CANCER METASTATIC
     Route: 030
     Dates: start: 200710, end: 200903
  5. TRASTUZUMAB. [Concomitant]
     Active Substance: TRASTUZUMAB
     Indication: BREAST CANCER METASTATIC
     Dates: start: 200710, end: 200903
  6. ZOLEDRONATE [Concomitant]
     Active Substance: ZOLEDRONIC ACID
     Indication: BREAST CANCER METASTATIC
     Dates: end: 20151223
  7. EXEMESTANE. [Concomitant]
     Active Substance: EXEMESTANE
     Route: 048
  8. MORPHINE [Concomitant]
     Active Substance: MORPHINE
     Route: 048
  9. PACLITAXEL. [Concomitant]
     Active Substance: PACLITAXEL
  10. HALDOL [Concomitant]
     Active Substance: HALOPERIDOL
     Indication: BREAST CANCER METASTATIC
     Route: 048
  11. CALCIUM WITH VITAMIN D [Concomitant]
     Active Substance: CALCIUM\VITAMIN D
     Route: 048
     Dates: start: 2003
  12. CITALOPRAM [Concomitant]
     Active Substance: CITALOPRAM HYDROBROMIDE
     Route: 048
     Dates: start: 20141231
  13. CARBOPLATIN. [Concomitant]
     Active Substance: CARBOPLATIN
  14. PROMETHAZINE HYDROCHLORIDE. [Concomitant]
     Active Substance: PROMETHAZINE HYDROCHLORIDE
     Route: 048
  15. LAPATINIB [Concomitant]
     Active Substance: LAPATINIB
     Indication: BREAST CANCER METASTATIC
     Dates: start: 20170124
  16. METHADONE [Concomitant]
     Active Substance: METHADONE HYDROCHLORIDE
  17. CAPECITABINE. [Concomitant]
     Active Substance: CAPECITABINE
     Indication: BREAST CANCER METASTATIC
     Dates: start: 20170124
  18. AMBIEN [Concomitant]
     Active Substance: ZOLPIDEM TARTRATE
  19. MULTIVITAMIN [Concomitant]
     Active Substance: VITAMINS
     Route: 048
  20. EXEMESTANE. [Concomitant]
     Active Substance: EXEMESTANE
  21. EVEROLIMUS. [Concomitant]
     Active Substance: EVEROLIMUS
  22. PANTOPRAZOLE SODIUM. [Concomitant]
     Active Substance: PANTOPRAZOLE SODIUM
     Route: 048
  23. PACLITAXEL. [Concomitant]
     Active Substance: PACLITAXEL
     Dates: start: 20160914
  24. METHADONE HYDROCHLORIDE. [Concomitant]
     Active Substance: METHADONE HYDROCHLORIDE
     Route: 048
  25. RADIOTHERAPY [Concomitant]
     Active Substance: RADIATION THERAPY

REACTIONS (38)
  - Osteonecrosis of jaw [Recovered/Resolved]
  - Myopathy [Recovering/Resolving]
  - Migraine [Unknown]
  - Osteopenia [Unknown]
  - Dehydration [Unknown]
  - Oedema peripheral [Unknown]
  - Tumour pain [Unknown]
  - Neuropathy peripheral [Unknown]
  - Fatigue [Unknown]
  - Asthenia [Unknown]
  - Cardiomegaly [Unknown]
  - Metastases to lung [Unknown]
  - Pleural effusion [Unknown]
  - Paronychia [Unknown]
  - Metastases to central nervous system [Unknown]
  - Pneumonia [Unknown]
  - Anaemia [Unknown]
  - Pain in extremity [Unknown]
  - Metastases to spine [Unknown]
  - Granuloma [Unknown]
  - Cushingoid [Unknown]
  - Intervertebral disc degeneration [Unknown]
  - Road traffic accident [Unknown]
  - Pericardial effusion [Unknown]
  - Metastases to bone [Unknown]
  - Device related infection [Unknown]
  - Hypomagnesaemia [Unknown]
  - Vomiting [Unknown]
  - Back pain [Not Recovered/Not Resolved]
  - Hand fracture [Unknown]
  - Alopecia [Unknown]
  - Hot flush [Unknown]
  - Arthropathy [Unknown]
  - Nausea [Unknown]
  - Staphylococcal bacteraemia [Recovered/Resolved]
  - Depression [Unknown]
  - Diarrhoea [Unknown]
  - Hypovolaemia [Unknown]

NARRATIVE: CASE EVENT DATE: 2004
